FAERS Safety Report 6854263-3 (Version None)
Quarter: 2010Q3

REPORT INFORMATION
  Report Type: 
  Country: None (occurrence: None)
  Receive Date: 20100717
  Receipt Date: 20080102
  Transmission Date: 20110219
  Serious: No
  Sender: FDA-Public Use
  Company Number: US-PFIZER INC-2008000916

PATIENT
  Sex: Male

DRUGS (1)
  1. CHANTIX [Suspect]
     Dates: start: 20071201

REACTIONS (3)
  - ABNORMAL DREAMS [None]
  - INSOMNIA [None]
  - RESTLESSNESS [None]
